FAERS Safety Report 12805987 (Version 1)
Quarter: 2016Q4

REPORT INFORMATION
  Report Type: Spontaneous
  Country: US (occurrence: US)
  Receive Date: 20161003
  Receipt Date: 20161003
  Transmission Date: 20170207
  Serious: Yes (Life-Threatening, Hospitalization, Disabling)
  Sender: FDA-Public Use
  Company Number: None

PATIENT
  Age: 48 Year
  Sex: Male
  Weight: 113.4 kg

DRUGS (3)
  1. HYOSCYAMINE SULFATE. [Suspect]
     Active Substance: HYOSCYAMINE SULFATE
     Indication: POSTOPERATIVE CARE
     Route: 048
     Dates: start: 20160903, end: 20160912
  2. VITAMIN D [Concomitant]
     Active Substance: CHOLECALCIFEROL
  3. CHILDREN^S CHEWABLE VITAMINS [Concomitant]

REACTIONS (1)
  - Pyrexia [None]

NARRATIVE: CASE EVENT DATE: 20160903
